FAERS Safety Report 16907743 (Version 1)
Quarter: 2019Q4

REPORT INFORMATION
  Report Type: Report from Study
  Country: None (occurrence: CR)
  Receive Date: 20191011
  Receipt Date: 20191011
  Transmission Date: 20200122
  Serious: Yes (Disabling, Other)
  Sender: FDA-Public Use
  Company Number: CR-ABBVIE-18K-039-2555657-00

PATIENT
  Sex: Female
  Weight: 90 kg

DRUGS (16)
  1. HUMIRA [Suspect]
     Active Substance: ADALIMUMAB
     Indication: ANKYLOSING SPONDYLITIS
     Route: 058
     Dates: start: 20110407
  2. PREDNISOLONE. [Concomitant]
     Active Substance: PREDNISOLONE
     Indication: ANKYLOSING SPONDYLITIS
     Route: 048
     Dates: start: 20100101
  3. PREDNISOLONE. [Concomitant]
     Active Substance: PREDNISOLONE
     Indication: ARTHRITIS
     Route: 048
  4. CEFALEXIN [Concomitant]
     Active Substance: CEPHALEXIN
     Indication: PRODUCT USED FOR UNKNOWN INDICATION
  5. FOLIC ACID. [Concomitant]
     Active Substance: FOLIC ACID
     Indication: PRODUCT USED FOR UNKNOWN INDICATION
     Dates: start: 20101001
  6. CALCIUM [Concomitant]
     Active Substance: CALCIUM
     Indication: PRODUCT USED FOR UNKNOWN INDICATION
  7. BERIFEN [Concomitant]
     Indication: BONE PAIN
     Route: 048
     Dates: start: 2015
  8. IRBESARTAN. [Concomitant]
     Active Substance: IRBESARTAN
     Indication: HYPERTENSION
     Dates: start: 20100101
  9. HUMIRA [Suspect]
     Active Substance: ADALIMUMAB
     Indication: RHEUMATOID ARTHRITIS
  10. BERIFEN [Concomitant]
     Indication: ANTIINFLAMMATORY THERAPY
     Dosage: ANTI-INFLAMMATORY, WEAR IN??THE SPINE
     Route: 048
     Dates: start: 20100101
  11. VITAMIN D [Concomitant]
     Active Substance: VITAMIN D NOS
     Indication: PRODUCT USED FOR UNKNOWN INDICATION
     Dates: start: 20100101
  12. HIDROCLOROTIAZIDA [Concomitant]
     Active Substance: HYDROCHLOROTHIAZIDE
     Indication: HYPERTENSION
     Dates: start: 20100101
  13. METHOTREXATE. [Concomitant]
     Active Substance: METHOTREXATE
     Indication: ANKYLOSING SPONDYLITIS
  14. IRON [Concomitant]
     Active Substance: IRON
     Indication: ANAEMIA
     Route: 048
     Dates: start: 20180713
  15. METHOTREXATE. [Concomitant]
     Active Substance: METHOTREXATE
     Indication: PAIN
     Route: 048
  16. FLUOXETINA [Concomitant]
     Active Substance: FLUOXETINE HYDROCHLORIDE
     Indication: DEPRESSION
     Dates: start: 20100101

REACTIONS (25)
  - Hypotension [Recovering/Resolving]
  - Intervertebral disc protrusion [Recovering/Resolving]
  - Proctalgia [Not Recovered/Not Resolved]
  - Gait disturbance [Recovering/Resolving]
  - Muscle rigidity [Not Recovered/Not Resolved]
  - Depression [Unknown]
  - Back pain [Recovering/Resolving]
  - Urinary tract infection [Recovering/Resolving]
  - Spinal osteoarthritis [Recovering/Resolving]
  - Gastritis [Recovering/Resolving]
  - Limb asymmetry [Unknown]
  - Colitis [Recovering/Resolving]
  - Gastric ulcer [Recovering/Resolving]
  - Arthropathy [Recovering/Resolving]
  - Varicose ulceration [Not Recovered/Not Resolved]
  - Pain [Not Recovered/Not Resolved]
  - Musculoskeletal stiffness [Recovering/Resolving]
  - Arthropathy [Recovering/Resolving]
  - Osteoarthritis [Unknown]
  - Anaemia [Not Recovered/Not Resolved]
  - Bleeding varicose vein [Unknown]
  - Musculoskeletal discomfort [Not Recovered/Not Resolved]
  - Asthenia [Not Recovered/Not Resolved]
  - Gastric ulcer [Not Recovered/Not Resolved]
  - Varicose vein ruptured [Not Recovered/Not Resolved]

NARRATIVE: CASE EVENT DATE: 2011
